FAERS Safety Report 14984212 (Version 3)
Quarter: 2019Q1

REPORT INFORMATION
  Report Type: Report from Study
  Country: FR (occurrence: FR)
  Receive Date: 20180607
  Receipt Date: 20190125
  Transmission Date: 20190417
  Serious: Yes (Death, Other)
  Sender: FDA-Public Use
  Company Number: FR-JAZZ-2017-FR-015314

PATIENT

DRUGS (8)
  1. ACICLOVIR [Concomitant]
     Active Substance: ACYCLOVIR
     Indication: INFECTION
     Dosage: 300 MG, QD
     Route: 042
     Dates: start: 20160122, end: 20160203
  2. CHOLURSO [Concomitant]
     Active Substance: URSODIOL
     Indication: PROPHYLAXIS
     Dosage: 500 MG, QD
     Route: 048
     Dates: start: 20160104, end: 20160129
  3. DEFITELIO [Suspect]
     Active Substance: DEFIBROTIDE SODIUM
     Indication: VENOOCCLUSIVE DISEASE
     Dosage: UNKNOWN DOSE
     Route: 042
     Dates: start: 20160122, end: 20160129
  4. METHYLPREDNISOLONE. [Concomitant]
     Active Substance: METHYLPREDNISOLONE
     Indication: GRAFT VERSUS HOST DISEASE
     Dosage: 120 MG, QD
     Route: 042
     Dates: start: 20160120, end: 20160203
  5. TIORFAN [Concomitant]
     Active Substance: RACECADOTRIL
     Indication: DIARRHOEA
     Dosage: UNK
     Route: 048
     Dates: start: 20160123, end: 20160129
  6. TRIMEBUTINE [Concomitant]
     Active Substance: TRIMEBUTINE
     Indication: PAIN
     Dosage: 100 MG, QD
     Route: 042
     Dates: start: 20160123, end: 20160203
  7. CUBICIN [Concomitant]
     Active Substance: DAPTOMYCIN
     Indication: INFECTION
     Dosage: 500 MG, QD
     Route: 042
     Dates: start: 20160201, end: 20160203
  8. MYCAMINE [Concomitant]
     Active Substance: MICAFUNGIN SODIUM
     Indication: INFECTION
     Dosage: 50 MG, QD
     Route: 042
     Dates: start: 20160120, end: 20160202

REACTIONS (6)
  - Multiple organ dysfunction syndrome [Fatal]
  - Rectal haemorrhage [Recovered/Resolved]
  - Haemophagocytic lymphohistiocytosis [Unknown]
  - Haematuria [Recovered/Resolved]
  - Coma [Fatal]
  - Infection [Unknown]

NARRATIVE: CASE EVENT DATE: 20160122
